FAERS Safety Report 24010750 (Version 1)
Quarter: 2024Q2

REPORT INFORMATION
  Report Type: Spontaneous
  Country: US (occurrence: US)
  Receive Date: 20240625
  Receipt Date: 20240625
  Transmission Date: 20240716
  Serious: Yes (Hospitalization, Other)
  Sender: FDA-Public Use
  Company Number: US-PFIZER INC-202400199433

PATIENT
  Age: 52 Year
  Sex: Female

DRUGS (2)
  1. ACETYLCYSTEINE [Suspect]
     Active Substance: ACETYLCYSTEINE
     Indication: Emphysema
     Dosage: UNK
  2. MUCOMYST [Suspect]
     Active Substance: ACETYLCYSTEINE
     Dosage: UNK

REACTIONS (4)
  - Dyspnoea [Unknown]
  - Seizure [Unknown]
  - Feeling hot [Unknown]
  - Bronchospasm [Unknown]
